FAERS Safety Report 8401255-9 (Version None)
Quarter: 2012Q2

REPORT INFORMATION
  Report Type: 
  Country: None (occurrence: None)
  Receive Date: 20120601
  Receipt Date: 20110713
  Transmission Date: 20120825
  Serious: No
  Sender: FDA-Public Use
  Company Number: US-PFIZER INC-K201100810

PATIENT
  Age: 41 Year
  Sex: Male
  Weight: 108.84 kg

DRUGS (1)
  1. ATROPEN [Suspect]
     Dosage: 2 MG, SINGLE
     Dates: start: 20110713, end: 20110713

REACTIONS (5)
  - INJECTION SITE ANAESTHESIA [None]
  - INJECTION SITE SWELLING [None]
  - INJECTION SITE PAIN [None]
  - HYPERTENSION [None]
  - ACCIDENTAL EXPOSURE [None]
